FAERS Safety Report 4606599-4 (Version None)
Quarter: 2005Q2

REPORT INFORMATION
  Report Type: 
  Country: None (occurrence: None)
  Receive Date: 20050223
  Receipt Date: 20040517
  Transmission Date: 20051028
  Serious: Yes (Hospitalization, Other)
  Sender: FDA-Public Use
  Company Number: WAES 0405USA01237

PATIENT
  Age: 60 Year
  Sex: Male
  Weight: 122.9248 kg

DRUGS (2)
  1. ZOCOR [Suspect]
     Indication: HYPERCHOLESTEROLAEMIA
     Dosage: 80 MG/DAILY/PO
     Route: 048
     Dates: start: 20030519, end: 20040312
  2. GEMFIBROZIL [Concomitant]

REACTIONS (1)
  - RHABDOMYOLYSIS [None]
